FAERS Safety Report 20559664 (Version 1)
Quarter: 2022Q1

REPORT INFORMATION
  Report Type: Spontaneous
  Country: US (occurrence: None)
  Receive Date: 20220304
  Receipt Date: 20220304
  Transmission Date: 20220423
  Serious: No
  Sender: FDA-Public Use
  Company Number: None

PATIENT
  Sex: Male

DRUGS (1)
  1. CUVITRU [Suspect]
     Active Substance: HUMAN IMMUNOGLOBULIN G
     Indication: Immunodeficiency common variable
     Dosage: OTHER QUANTITY : 10GM;?FREQUENCY : EVERY OTHER WEEK;?
     Route: 058
     Dates: start: 201712

REACTIONS (6)
  - Myalgia [None]
  - Pain in extremity [None]
  - Gait disturbance [None]
  - Product quality issue [None]
  - Pyrexia [None]
  - Infusion related reaction [None]
